FAERS Safety Report 7171344-8 (Version None)
Quarter: 2010Q4

REPORT INFORMATION
  Report Type: 
  Country: None (occurrence: None)
  Receive Date: 20101217
  Receipt Date: 20101216
  Transmission Date: 20110411
  Serious: Yes (Death)
  Sender: FDA-Public Use
  Company Number: PHHY2010GT85384

PATIENT
  Age: 71 Year
  Sex: Female

DRUGS (1)
  1. RASILEZ [Suspect]
     Dosage: TABLET (300 MG)

REACTIONS (1)
  - DEATH [None]
